FAERS Safety Report 23932321 (Version 1)
Quarter: 2024Q2

REPORT INFORMATION
  Report Type: Spontaneous
  Country: US (occurrence: US)
  Receive Date: 20240603
  Receipt Date: 20240603
  Transmission Date: 20240716
  Serious: No
  Sender: FDA-Public Use
  Company Number: US-002147023-NVSC2024US115825

PATIENT
  Age: 24 Year
  Weight: 122.46 kg

DRUGS (3)
  1. KESIMPTA [Suspect]
     Active Substance: OFATUMUMAB
     Indication: Multiple sclerosis
     Dosage: UNK
     Route: 065
  2. CITALOPRAM [Suspect]
     Active Substance: CITALOPRAM\CITALOPRAM HYDROBROMIDE
     Indication: Product used for unknown indication
     Dosage: 40 MG, QD
     Route: 065
  3. VITAMIN D NOS [Suspect]
     Active Substance: CHOLECALCIFEROL\ERGOCALCIFEROL
     Indication: Product used for unknown indication
     Dosage: 4000 IU INTERNATIONAL UNIT(S)
     Route: 065

REACTIONS (6)
  - Rash [Unknown]
  - Ephelides [Unknown]
  - Melanocytic naevus [Unknown]
  - Skin disorder [Unknown]
  - Swelling [Unknown]
  - Erythema [Unknown]
